FAERS Safety Report 21397689 (Version 1)
Quarter: 2022Q3

REPORT INFORMATION
  Report Type: Spontaneous
  Country: US (occurrence: US)
  Receive Date: 20220930
  Receipt Date: 20220930
  Transmission Date: 20221027
  Serious: Yes (Other)
  Sender: FDA-Public Use
  Company Number: US-AMGEN-USASP2022165805

PATIENT
  Age: 48 Year
  Sex: Male

DRUGS (2)
  1. BEVACIZUMAB [Suspect]
     Active Substance: BEVACIZUMAB
     Indication: Radiation necrosis
     Dosage: 7.5 MILLIGRAM/KG, Q2WK
     Route: 065
  2. BEVACIZUMAB [Suspect]
     Active Substance: BEVACIZUMAB
     Dosage: 5 MILLIGRAM/KG, Q3WK CONTINUED FOR 6 CYCLES
     Route: 065

REACTIONS (6)
  - Cerebral ischaemia [Unknown]
  - Drug effective for unapproved indication [Unknown]
  - Balance disorder [Unknown]
  - Off label use [Unknown]
  - Vision blurred [Unknown]
  - Headache [Unknown]
